FAERS Safety Report 18598434 (Version 4)
Quarter: 2021Q4

REPORT INFORMATION
  Report Type: Report from Study
  Country: US (occurrence: None)
  Receive Date: 20201210
  Receipt Date: 20211130
  Transmission Date: 20220303
  Serious: Yes (Death)
  Sender: FDA-Public Use
  Company Number: US-ROCHE-2723251

PATIENT
  Age: 61 Year
  Sex: Male

DRUGS (15)
  1. OXALIPLATIN [Suspect]
     Active Substance: OXALIPLATIN
     Indication: Oesophageal adenocarcinoma
     Dosage: THE MOST RECENT DOSE WAS ADMINISTERED ON 05/NOV/2020?DAYS 1-15 OF EACH 21-DAY CYCLE
     Route: 042
     Dates: start: 20201015, end: 20201117
  2. DKN-01 [Suspect]
     Active Substance: DKN-01
     Indication: Oesophageal adenocarcinoma
     Dosage: THE MOST RECENT DOSE WAS ADMINISTERED ON 05/NOV/2020?DAYS 1-15 OF EACH 21-DAY CYCLE
     Route: 042
     Dates: start: 20201015, end: 20201117
  3. CAPECITABINE [Suspect]
     Active Substance: CAPECITABINE
     Indication: Oesophageal adenocarcinoma
     Dosage: THE MOST RECENT DOSE WAS ADMINISTERD ON 17/NOV/2020?DAYS 1-15 OF EACH 21-DAY CYCLE
     Route: 048
     Dates: start: 20201015, end: 20201117
  4. TISLELIZUMAB [Suspect]
     Active Substance: TISLELIZUMAB
     Indication: Oesophageal adenocarcinoma
     Dosage: THE MOST RECENT DOSE OF PRIOR TO SAE ONSET DATE WAS 200 MG IN CYCLE 2 ON 05/NOV/2020.
     Route: 042
     Dates: start: 20201015, end: 20201117
  5. LORAZEPAM [Concomitant]
     Active Substance: LORAZEPAM
     Dates: start: 20201116, end: 20201117
  6. ONDANSETRON [Concomitant]
     Active Substance: ONDANSETRON
     Dates: start: 20201009, end: 20201117
  7. COMPAZINE [Concomitant]
     Active Substance: PROCHLORPERAZINE MALEATE
     Dates: start: 20201105, end: 20201117
  8. OLANZAPINE [Concomitant]
     Active Substance: OLANZAPINE
     Dates: start: 20201116, end: 20201117
  9. SUCRALFATE [Concomitant]
     Active Substance: SUCRALFATE
     Dates: start: 20201029, end: 20201117
  10. ESOMEPRAZOLE [Concomitant]
     Active Substance: ESOMEPRAZOLE
     Dates: start: 2015, end: 20201029
  11. ESOMEPRAZOLE [Concomitant]
     Active Substance: ESOMEPRAZOLE
     Dates: start: 20201029, end: 20201117
  12. EPINEPHRINE [Concomitant]
     Active Substance: EPINEPHRINE
  13. TYLENOL [Concomitant]
     Active Substance: ACETAMINOPHEN
     Dates: start: 20201015, end: 20201117
  14. MAGNESIUM CARBONATE [Concomitant]
     Active Substance: MAGNESIUM CARBONATE
     Dates: start: 20201016, end: 20201117
  15. TUMS [Concomitant]
     Active Substance: CALCIUM CARBONATE
     Dates: start: 20201016, end: 20201117

REACTIONS (1)
  - Pulmonary embolism [Fatal]

NARRATIVE: CASE EVENT DATE: 20201117
